FAERS Safety Report 20290970 (Version 2)
Quarter: 2022Q1

REPORT INFORMATION
  Report Type: Spontaneous
  Country: GB (occurrence: GB)
  Receive Date: 20220104
  Receipt Date: 20220208
  Transmission Date: 20220424
  Serious: Yes (Other)
  Sender: FDA-Public Use
  Company Number: GB-BEH-2021138780

PATIENT
  Age: 4 Year
  Sex: Male
  Weight: 26.8 kg

DRUGS (8)
  1. IDELVION [Suspect]
     Active Substance: COAGULATION FACTOR IX RECOMBINANT HUMAN
     Indication: Factor IX deficiency
     Dosage: 30 INTERNATIONAL UNIT/KILOGRAM
     Route: 065
  2. IDELVION [Suspect]
     Active Substance: COAGULATION FACTOR IX RECOMBINANT HUMAN
     Indication: Factor IX deficiency
     Dosage: 30 INTERNATIONAL UNIT/KILOGRAM
     Route: 065
  3. IDELVION [Suspect]
     Active Substance: COAGULATION FACTOR IX RECOMBINANT HUMAN
     Dosage: 28 INTERNATIONAL UNIT/KILOGRAM
     Route: 065
  4. IDELVION [Suspect]
     Active Substance: COAGULATION FACTOR IX RECOMBINANT HUMAN
     Dosage: 28 INTERNATIONAL UNIT/KILOGRAM
     Route: 065
  5. IDELVION [Suspect]
     Active Substance: COAGULATION FACTOR IX RECOMBINANT HUMAN
     Dosage: UNK
     Route: 050
     Dates: start: 20210625, end: 20210919
  6. IDELVION [Suspect]
     Active Substance: COAGULATION FACTOR IX RECOMBINANT HUMAN
     Dosage: UNK
     Route: 050
     Dates: start: 20210625, end: 20210919
  7. IDELVION [Suspect]
     Active Substance: COAGULATION FACTOR IX RECOMBINANT HUMAN
     Dosage: 750 INTERNATIONAL UNIT, QW
     Route: 050
  8. IDELVION [Suspect]
     Active Substance: COAGULATION FACTOR IX RECOMBINANT HUMAN
     Dosage: 750 INTERNATIONAL UNIT, QW
     Route: 050

REACTIONS (8)
  - Haemarthrosis [Recovered/Resolved with Sequelae]
  - No adverse event [Unknown]
  - Underdose [Unknown]
  - Soft tissue haemorrhage [Recovered/Resolved with Sequelae]
  - Arthralgia [Recovered/Resolved with Sequelae]
  - Arthralgia [Recovered/Resolved with Sequelae]
  - Traumatic haemorrhage [Recovered/Resolved with Sequelae]
  - Arthralgia [Recovered/Resolved with Sequelae]

NARRATIVE: CASE EVENT DATE: 20210625
